FAERS Safety Report 23172750 (Version 1)
Quarter: 2023Q4

REPORT INFORMATION
  Report Type: Spontaneous
  Country: CN (occurrence: CN)
  Receive Date: 20231110
  Receipt Date: 20231110
  Transmission Date: 20240109
  Serious: Yes (Other)
  Sender: FDA-Public Use
  Company Number: CN-JNJFOC-20231104737

PATIENT
  Age: 85 Year
  Sex: Male

DRUGS (1)
  1. ERLEADA [Suspect]
     Active Substance: APALUTAMIDE
     Indication: Product used for unknown indication
     Route: 048

REACTIONS (3)
  - Dermatitis exfoliative [Not Recovered/Not Resolved]
  - Oedema [Not Recovered/Not Resolved]
  - Dermatitis allergic [Not Recovered/Not Resolved]
